FAERS Safety Report 9219007 (Version 1)
Quarter: 2013Q2

REPORT INFORMATION
  Report Type: Spontaneous
  Country: US (occurrence: US)
  Receive Date: 20130409
  Receipt Date: 20130409
  Transmission Date: 20140414
  Serious: No
  Sender: FDA-Public Use
  Company Number: US-JNJFOC-20130307829

PATIENT
  Age: 32 Year
  Sex: Male
  Weight: 127.01 kg

DRUGS (1)
  1. INVEGA SUSTENNA [Suspect]
     Indication: PSYCHOTIC DISORDER
     Route: 030
     Dates: start: 201108

REACTIONS (1)
  - Drug dose omission [Not Recovered/Not Resolved]
